FAERS Safety Report 5483178-0 (Version None)
Quarter: 2007Q4

REPORT INFORMATION
  Report Type: 
  Country: None (occurrence: None)
  Receive Date: 20071005
  Receipt Date: 20070924
  Transmission Date: 20080405
  Serious: Yes (Other)
  Sender: FDA-Public Use
  Company Number: 2007AL003991

PATIENT

DRUGS (4)
  1. DIAZEPAM [Suspect]
     Indication: DRUG EXPOSURE DURING PREGNANCY
     Dosage: TRPL
     Route: 064
  2. METHADONE HCL [Concomitant]
  3. DIHYDROCODEINE BITARTRATE INJ [Concomitant]
  4. AMPHETAMINES [Concomitant]

REACTIONS (9)
  - DEVELOPMENTAL DELAY [None]
  - DRUG EXPOSURE DURING PREGNANCY [None]
  - DRUG WITHDRAWAL SYNDROME NEONATAL [None]
  - HYPERMETROPIA [None]
  - MICROCEPHALY [None]
  - MYOPIA [None]
  - NYSTAGMUS [None]
  - OPTIC NERVE HYPOPLASIA [None]
  - STRABISMUS [None]
